FAERS Safety Report 18041770 (Version 3)
Quarter: 2021Q1

REPORT INFORMATION
  Report Type: Spontaneous
  Country: US (occurrence: US)
  Receive Date: 20200720
  Receipt Date: 20210308
  Transmission Date: 20210419
  Serious: Yes (Death, Hospitalization, Other)
  Sender: FDA-Public Use
  Company Number: US-TEVA-2020-US-1802771

PATIENT
  Age: 46 Year
  Sex: Male
  Weight: 210.2 kg

DRUGS (12)
  1. CLONIDINE. [Concomitant]
     Active Substance: CLONIDINE
     Indication: HYPERTENSION
     Dosage: 1 MILLIGRAM DAILY; DOSAGE: 01MG; ONCE DAILY
     Dates: start: 20120903, end: 20200820
  2. AMLODIPINE/VALSARTAN TEVA [Suspect]
     Active Substance: AMLODIPINE\VALSARTAN
     Dates: start: 20150617, end: 20150915
  3. METFORMIN [Concomitant]
     Active Substance: METFORMIN HYDROCHLORIDE
     Indication: DIABETES MELLITUS
     Dosage: 500 MILLIGRAM DAILY; DOSAGE: 500MG; ONCE DAILY
     Route: 048
     Dates: start: 20120521, end: 20200820
  4. AMLODIPINE/VALSARTAN [Suspect]
     Active Substance: AMLODIPINE\VALSARTAN
     Indication: HYPERTENSION
     Dosage: DOSAGE: 320MG, AMLODIPINE/VALSARTAN ALEMBIC
     Route: 065
     Dates: start: 20180108, end: 20180706
  5. TRIAMTERENE/HYDROCHLOROTHIAZID [Concomitant]
     Indication: HYPERTENSION
  6. METOPROLOL. [Concomitant]
     Active Substance: METOPROLOL
     Indication: HYPERTENSION
  7. AMLODIPINE [Concomitant]
     Active Substance: AMLODIPINE BESYLATE
     Indication: HYPERTENSION
  8. AMLODIPINE/VALSARTAN TEVA [Suspect]
     Active Substance: AMLODIPINE\VALSARTAN
     Dates: start: 20180108, end: 20180706
  9. AMLODIPINE/VALSARTAN [Suspect]
     Active Substance: AMLODIPINE\VALSARTAN
     Indication: HYPERTENSION
     Dosage: DOSAGE: 320MG, AMLODIPINE/VALSARTAN PAR
     Route: 065
     Dates: start: 20150617, end: 20150915
  10. ASPIRIN. [Concomitant]
     Active Substance: ASPIRIN
     Indication: ANALGESIC THERAPY
     Dosage: 162 MILLIGRAM DAILY; DOSAGE: 81MG, TWICE DAILY
     Route: 048
     Dates: start: 20100210, end: 20200820
  11. LIPITOR [Concomitant]
     Active Substance: ATORVASTATIN CALCIUM
     Indication: BLOOD CHOLESTEROL INCREASED
     Dosage: 20 MILLIGRAM DAILY; DOSAGE: 20MG; ONCE DAILY
     Route: 048
     Dates: start: 20111213, end: 20200820
  12. AMLODIPINE/VALSARTAN TEVA [Suspect]
     Active Substance: AMLODIPINE\VALSARTAN
     Indication: HYPERTENSION
     Dosage: DOSAGE:320MG, AMLODIPINE/VALSARTAN TEVA
     Route: 065
     Dates: start: 20150921, end: 20150925

REACTIONS (2)
  - Hepatic cancer [Fatal]
  - Colon cancer [Fatal]
